FAERS Safety Report 24582805 (Version 1)
Quarter: 2024Q4

REPORT INFORMATION
  Report Type: Spontaneous
  Country: RS (occurrence: RS)
  Receive Date: 20241106
  Receipt Date: 20241106
  Transmission Date: 20250114
  Serious: Yes (Hospitalization, Other)
  Sender: ROCHE
  Company Number: RS-ROCHE-10000120853

PATIENT
  Age: 66 Year
  Sex: Male

DRUGS (4)
  1. TECENTRIQ [Suspect]
     Active Substance: ATEZOLIZUMAB
     Indication: Adenocarcinoma
     Dosage: 3 CYCLES
     Route: 065
     Dates: start: 20240812
  2. BEVACIZUMAB [Suspect]
     Active Substance: BEVACIZUMAB
     Indication: Adenocarcinoma
     Dosage: 3 CYCLES
     Route: 065
     Dates: start: 20240812
  3. PACLITAXEL [Suspect]
     Active Substance: PACLITAXEL
     Indication: Adenocarcinoma
     Dosage: 3 CYCLES
     Route: 065
     Dates: start: 20240812
  4. PLATINUM [Suspect]
     Active Substance: PLATINUM
     Indication: Adenocarcinoma
     Dosage: 3 CYCLES
     Route: 065
     Dates: start: 20240812

REACTIONS (4)
  - Metastases to lung [Unknown]
  - Pneumothorax [Unknown]
  - Emphysema [Unknown]
  - Leukopenia [Unknown]
